FAERS Safety Report 15923754 (Version 1)
Quarter: 2019Q1

REPORT INFORMATION
  Report Type: Spontaneous
  Country: US (occurrence: US)
  Receive Date: 20190115
  Receipt Date: 20190115
  Transmission Date: 20190417
  Serious: No
  Sender: FDA-Public Use
  Company Number: None

PATIENT
  Age: 35 Year
  Sex: Female

DRUGS (1)
  1. MAKENA [Suspect]
     Active Substance: HYDROXYPROGESTERONE CAPROATE
     Route: 030
     Dates: start: 20181206, end: 20190105

REACTIONS (5)
  - Injection site erythema [None]
  - Injection site swelling [None]
  - Injection site mass [None]
  - Injection site urticaria [None]
  - Maternal exposure during pregnancy [None]

NARRATIVE: CASE EVENT DATE: 20181206
